FAERS Safety Report 9924387 (Version 1)
Quarter: 2014Q1

REPORT INFORMATION
  Report Type: Spontaneous
  Country: US (occurrence: US)
  Receive Date: 20140226
  Receipt Date: 20140226
  Transmission Date: 20141002
  Serious: Yes (Other)
  Sender: FDA-Public Use
  Company Number: US-ASTRAZENECA-2014SE11898

PATIENT
  Age: 38 Year
  Sex: Female

DRUGS (4)
  1. SYMBICORT [Suspect]
     Indication: ASTHMA
     Dosage: 160/4.5MCG 2 PUFF BID
     Route: 055
     Dates: start: 20140210, end: 20140211
  2. OMNARIS [Concomitant]
     Route: 045
  3. XOPINEX [Concomitant]
  4. ASTEPRO NASAL SPRAY [Concomitant]
     Route: 045

REACTIONS (6)
  - Local swelling [Recovering/Resolving]
  - Swelling face [Recovering/Resolving]
  - Lip swelling [Recovering/Resolving]
  - Urticaria [Recovering/Resolving]
  - Rash [Recovering/Resolving]
  - Rash macular [Recovering/Resolving]
